FAERS Safety Report 9253114 (Version 1)
Quarter: 2013Q2

REPORT INFORMATION
  Report Type: Spontaneous
  Country: US (occurrence: US)
  Receive Date: 20130424
  Receipt Date: 20130424
  Transmission Date: 20140414
  Serious: No
  Sender: FDA-Public Use
  Company Number: US-ASTRAZENECA-2013SE24176

PATIENT
  Sex: Female

DRUGS (6)
  1. PULMICORT [Suspect]
     Indication: ASTHMA
     Route: 055
     Dates: start: 2012
  2. PULMICORT [Suspect]
     Indication: ASTHMA
     Dosage: 0.25 MG
     Route: 055
  3. PULMICORT [Suspect]
     Indication: ASTHMA
     Dosage: 0.50 MG
     Route: 055
  4. PULMICORT [Suspect]
     Indication: ASTHMA
     Dosage: 1 MG
     Route: 055
  5. ADVAIR [Suspect]
     Route: 065
  6. ZOPAMAX [Concomitant]

REACTIONS (3)
  - Palpitations [Unknown]
  - Off label use [Unknown]
  - Drug ineffective [Unknown]
